FAERS Safety Report 13356293 (Version 2)
Quarter: 2017Q2

REPORT INFORMATION
  Report Type: Spontaneous
  Country: SE (occurrence: SE)
  Receive Date: 20170321
  Receipt Date: 20170510
  Transmission Date: 20170830
  Serious: Yes (Other)
  Sender: FDA-Public Use
  Company Number: SE-JNJFOC-20170316821

PATIENT
  Age: 41 Year
  Sex: Male

DRUGS (7)
  1. PREDNISOLONE. [Concomitant]
     Active Substance: PREDNISOLONE
     Route: 065
     Dates: start: 201607
  2. FLAGYL [Concomitant]
     Active Substance: METRONIDAZOLE\METRONIDAZOLE HYDROCHLORIDE
     Route: 065
     Dates: start: 201609
  3. STELARA [Suspect]
     Active Substance: USTEKINUMAB
     Indication: ARTHROPATHY
     Route: 058
     Dates: start: 20150708, end: 201612
  4. CIPROFLOXACIN. [Concomitant]
     Active Substance: CIPROFLOXACIN
     Route: 065
     Dates: start: 201609
  5. ASACOL [Concomitant]
     Active Substance: MESALAMINE
     Indication: PSORIASIS
     Route: 065
  6. STELARA [Suspect]
     Active Substance: USTEKINUMAB
     Indication: PSORIASIS
     Route: 058
     Dates: start: 20150708, end: 201612
  7. METHOTREXATE. [Concomitant]
     Active Substance: METHOTREXATE
     Route: 065

REACTIONS (2)
  - Erectile dysfunction [Unknown]
  - Anal cancer [Unknown]

NARRATIVE: CASE EVENT DATE: 201608
